FAERS Safety Report 8196563-3 (Version None)
Quarter: 2012Q1

REPORT INFORMATION
  Report Type: 
  Country: None (occurrence: None)
  Receive Date: 20120309
  Receipt Date: 20120229
  Transmission Date: 20120608
  Serious: Yes (Hospitalization)
  Sender: FDA-Public Use
  Company Number: US-JNJFOC-20120300356

PATIENT
  Sex: Female
  Weight: 68.04 kg

DRUGS (3)
  1. REMICADE [Suspect]
     Indication: RHEUMATOID ARTHRITIS
     Route: 042
     Dates: start: 19820101, end: 20111101
  2. TRAMADOL HCL [Concomitant]
     Indication: PAIN
     Route: 048
  3. METHOTREXATE [Concomitant]
     Indication: RHEUMATOID ARTHRITIS
     Route: 048

REACTIONS (11)
  - EMOTIONAL DISTRESS [None]
  - LOCALISED INFECTION [None]
  - MYALGIA [None]
  - BONE DISORDER [None]
  - HYPERTENSION [None]
  - THYROID DISORDER [None]
  - FLUID RETENTION [None]
  - BLADDER DISORDER [None]
  - INSOMNIA [None]
  - FLATULENCE [None]
  - ARTHRALGIA [None]
